FAERS Safety Report 5535121-3 (Version None)
Quarter: 2007Q4

REPORT INFORMATION
  Report Type: 
  Country: None (occurrence: None)
  Receive Date: 20071203
  Receipt Date: 20071115
  Transmission Date: 20080405
  Serious: Yes (Other)
  Sender: FDA-Public Use
  Company Number: 2007EU002517

PATIENT
  Age: 16 Year
  Sex: Female

DRUGS (2)
  1. SOLIFENACIN (SOLIFENACIN) TABLET, UNKNOWN [Suspect]
     Indication: MICTURITION URGENCY
     Dosage: 5 MG, UNKNOWN/D, ORAL, 10 MG, UNKNOWN/D, ORAL
     Route: 048
     Dates: start: 20070101, end: 20071101
  2. MICROGYNON (ETHINYLESTRADIOL, LEVONOGESTREL) [Concomitant]

REACTIONS (4)
  - DEPRESSIVE SYMPTOM [None]
  - NIGHTMARE [None]
  - SENSORY DISTURBANCE [None]
  - TEARFULNESS [None]
